FAERS Safety Report 8834584 (Version 3)
Quarter: 2013Q2

REPORT INFORMATION
  Report Type: Spontaneous
  Country: US (occurrence: US)
  Receive Date: 20121010
  Receipt Date: 20130509
  Transmission Date: 20140414
  Serious: No
  Sender: FDA-Public Use
  Company Number: US-BAYER-2012-104466

PATIENT
  Age: 80 Year
  Sex: Female
  Weight: 41 kg

DRUGS (4)
  1. ALEVE CAPLET/TABLET,MIDOL EXTENDED RELIEF CAPLET [Suspect]
     Indication: BACK PAIN
     Dosage: 1 DF, QD
     Route: 048
     Dates: start: 20130401
  2. ALEVE LIQUID GELS [Suspect]
     Indication: ANALGESIC THERAPY
  3. DIGOXIN [Concomitant]
  4. DILTIAZEM [Concomitant]

REACTIONS (4)
  - Pain [None]
  - Therapeutic response unexpected [None]
  - Incorrect drug administration duration [None]
  - Expired drug administered [None]
